FAERS Safety Report 8928659 (Version 1)
Quarter: 2012Q4

REPORT INFORMATION
  Report Type: 
  Country: US (occurrence: US)
  Receive Date: 20121128
  Receipt Date: 20121128
  Transmission Date: 20130627
  Serious: No
  Sender: FDA-Public Use
  Company Number: US-PFIZER INC-2012297294

PATIENT
  Age: 60 Year
  Sex: Male
  Weight: 72.56 kg

DRUGS (7)
  1. ACCURETIC [Suspect]
     Indication: BLOOD PRESSURE HIGH
     Dosage: [quinapril 20mg]/ [hydrochlorothiazide 25mg] once a day
     Route: 048
  2. PRAVASTATIN [Concomitant]
     Dosage: UNK
  3. AMPICILLIN [Concomitant]
     Dosage: 500 mg, UNK
  4. NEXIUM [Concomitant]
     Dosage: UNK
  5. MULTIVITAMINS [Concomitant]
     Dosage: UNK
  6. ASPIRIN [Concomitant]
     Dosage: UNK
  7. VICODIN [Concomitant]
     Indication: LEG INJURY
     Dosage: UNK, as needed

REACTIONS (1)
  - Melanocytic naevus [Not Recovered/Not Resolved]
